FAERS Safety Report 6795912-8 (Version None)
Quarter: 2010Q2

REPORT INFORMATION
  Report Type: 
  Country: None (occurrence: None)
  Receive Date: 20100625
  Receipt Date: 20100617
  Transmission Date: 20101027
  Serious: Yes (Other)
  Sender: FDA-Public Use
  Company Number: B0602522A

PATIENT
  Sex: Female

DRUGS (1)
  1. RELENZA [Suspect]
     Indication: INFLUENZA
     Dosage: 20MG PER DAY
     Route: 055
     Dates: start: 20091028, end: 20091030

REACTIONS (16)
  - BRONCHITIS [None]
  - CONJUNCTIVITIS [None]
  - COUGH [None]
  - DYSKINESIA [None]
  - DYSPHAGIA [None]
  - GENERAL PHYSICAL HEALTH DETERIORATION [None]
  - LIP OEDEMA [None]
  - MOUTH HAEMORRHAGE [None]
  - ORAL DISCOMFORT [None]
  - ORAL MUCOSA EROSION [None]
  - ORAL PAIN [None]
  - PALLOR [None]
  - PLATELET COUNT INCREASED [None]
  - RADIOALLERGOSORBENT TEST POSITIVE [None]
  - STEVENS-JOHNSON SYNDROME [None]
  - TONGUE DISORDER [None]
